FAERS Safety Report 16188592 (Version 1)
Quarter: 2019Q2

REPORT INFORMATION
  Report Type: Spontaneous
  Country: RS (occurrence: RS)
  Receive Date: 20190412
  Receipt Date: 20190412
  Transmission Date: 20190711
  Serious: Yes (Other)
  Sender: FDA-Public Use
  Company Number: PHHY2019RS083170

PATIENT
  Age: 56 Year
  Sex: Female

DRUGS (1)
  1. AMOKSIKLAV [Suspect]
     Active Substance: AMOXICILLIN\CLAVULANATE POTASSIUM
     Indication: BRONCHITIS
     Dosage: 1000 MG, BID, FOR 5 DAYS
     Route: 065

REACTIONS (3)
  - Red blood cell sedimentation rate increased [Recovered/Resolved]
  - Off label use [Unknown]
  - C-reactive protein increased [Recovered/Resolved]
